FAERS Safety Report 18973698 (Version 3)
Quarter: 2021Q2

REPORT INFORMATION
  Report Type: Other
  Country: JP (occurrence: JP)
  Receive Date: 20210305
  Receipt Date: 20210524
  Transmission Date: 20210717
  Serious: Yes (Other)
  Sender: FDA-Public Use
  Company Number: JP-ROCHE-2783662

PATIENT

DRUGS (2)
  1. ENTRECTINIB [Suspect]
     Active Substance: ENTRECTINIB
     Route: 048
  2. ENTRECTINIB [Suspect]
     Active Substance: ENTRECTINIB
     Indication: NON-SMALL CELL LUNG CANCER
     Route: 048

REACTIONS (1)
  - Haemorrhagic cholecystitis [Recovered/Resolved]

NARRATIVE: CASE EVENT DATE: 20210226
